FAERS Safety Report 9932014 (Version 1)
Quarter: 2014Q1

REPORT INFORMATION
  Report Type: Spontaneous
  Country: US (occurrence: US)
  Receive Date: 20140228
  Receipt Date: 20140228
  Transmission Date: 20141002
  Serious: No
  Sender: FDA-Public Use
  Company Number: US-ABBVIE-13P-163-1142028-00

PATIENT
  Age: 75 Year
  Sex: Male
  Weight: 188.41 kg

DRUGS (14)
  1. ANDROGEL [Suspect]
     Indication: BLOOD TESTOSTERONE DECREASED
     Route: 061
     Dates: start: 20130827
  2. HUMALOG [Concomitant]
     Indication: TYPE 2 DIABETES MELLITUS
     Dosage: PEN
  3. LEVEMIR [Concomitant]
     Indication: TYPE 2 DIABETES MELLITUS
     Dosage: PEN
  4. GLIPIZIDE XL [Concomitant]
     Indication: TYPE 2 DIABETES MELLITUS
  5. SPIRONOLACTONE [Concomitant]
     Indication: FLUID RETENTION
  6. ZETIA [Concomitant]
     Indication: PRODUCT USED FOR UNKNOWN INDICATION
  7. LISINOPRIL [Concomitant]
     Indication: HYPERTENSION
  8. ASPIRIN [Concomitant]
     Indication: CARDIOVASCULAR EVENT PROPHYLAXIS
  9. POTASSIUM [Concomitant]
     Indication: BLOOD POTASSIUM DECREASED
  10. TOPROL [Concomitant]
     Indication: HEART RATE ABNORMAL
  11. TOPROL [Concomitant]
     Indication: ATRIAL FIBRILLATION
  12. LASIX [Concomitant]
     Indication: FLUID RETENTION
  13. MULTIPLE VITAMIN [Concomitant]
     Indication: VITAMIN SUPPLEMENTATION
  14. FISH OIL [Concomitant]
     Indication: CARDIOVASCULAR EVENT PROPHYLAXIS

REACTIONS (1)
  - Blood glucose decreased [Not Recovered/Not Resolved]
